FAERS Safety Report 20919457 (Version 1)
Quarter: 2022Q2

REPORT INFORMATION
  Report Type: Spontaneous
  Country: US (occurrence: US)
  Receive Date: 20220606
  Receipt Date: 20220606
  Transmission Date: 20220721
  Serious: No
  Sender: FDA-Public Use
  Company Number: US-PFIZER INC-202200794375

PATIENT
  Age: 79 Year
  Sex: Female
  Weight: 66.68 kg

DRUGS (2)
  1. AMLODIPINE BESYLATE [Suspect]
     Active Substance: AMLODIPINE BESYLATE
     Dosage: 10 MG, 1X/DAY
     Route: 048
  2. BENZONATATE [Suspect]
     Active Substance: BENZONATATE
     Dosage: UNK

REACTIONS (1)
  - COVID-19 [Unknown]
